FAERS Safety Report 25068069 (Version 1)
Quarter: 2025Q1

REPORT INFORMATION
  Report Type: Spontaneous
  Country: NL (occurrence: NL)
  Receive Date: 20250312
  Receipt Date: 20250312
  Transmission Date: 20250408
  Serious: Yes (Life-Threatening, Disabling, Other)
  Sender: ACCORD
  Company Number: None

PATIENT
  Age: 61 Year
  Sex: Female
  Weight: 69 kg

DRUGS (1)
  1. LETROZOLE [Suspect]
     Active Substance: LETROZOLE
     Indication: Hormone therapy
     Dates: start: 20240801, end: 20241001

REACTIONS (6)
  - Systemic lupus erythematosus [Not Recovered/Not Resolved]
  - Anhidrosis [Not Recovered/Not Resolved]
  - Cardiac failure [Not Recovered/Not Resolved]
  - Neuralgic amyotrophy [Not Recovered/Not Resolved]
  - Epilepsy [Not Recovered/Not Resolved]
  - Sexual dysfunction [Not Recovered/Not Resolved]
